FAERS Safety Report 11708727 (Version 1)
Quarter: 2015Q4

REPORT INFORMATION
  Report Type: Spontaneous
  Country: US (occurrence: US)
  Receive Date: 20151104
  Receipt Date: 20151104
  Transmission Date: 20160304
  Serious: No
  Sender: FDA-Public Use
  Company Number: US-ELI_LILLY_AND_COMPANY-US201103003527

PATIENT
  Sex: Female

DRUGS (1)
  1. FORTEO [Suspect]
     Active Substance: TERIPARATIDE
     Indication: OSTEOPOROSIS
     Dosage: 20 UG, 2/D
     Route: 065
     Dates: start: 201102, end: 201102

REACTIONS (10)
  - Musculoskeletal pain [Unknown]
  - Intentional product misuse [Unknown]
  - Gait disturbance [Unknown]
  - Pain [Recovered/Resolved]
  - Malaise [Unknown]
  - Arthralgia [Unknown]
  - Feeling abnormal [Unknown]
  - Overdose [Unknown]
  - Incorrect dose administered [Unknown]
  - Head discomfort [Unknown]
